FAERS Safety Report 9861147 (Version 2)
Quarter: 2014Q1

REPORT INFORMATION
  Report Type: Spontaneous
  Country: None (occurrence: US)
  Receive Date: 20140202
  Receipt Date: 20140202
  Transmission Date: 20141002
  Serious: No
  Sender: FDA-Public Use
  Company Number: US-ALLERGAN-1303736US

PATIENT
  Age: 47 Year
  Sex: Male

DRUGS (5)
  1. BOTOX [Suspect]
     Indication: TORTICOLLIS
     Dosage: UNK, SINGLE
     Route: 030
     Dates: start: 20130305, end: 20130305
  2. BOTOX [Suspect]
     Dosage: UNK, SINGLE
     Route: 030
     Dates: start: 20121204, end: 20121204
  3. BOTOX [Suspect]
     Dosage: UNK, SINGLE
     Route: 030
     Dates: start: 201209, end: 201209
  4. BOTOX [Suspect]
     Dosage: UNK, SINGLE
     Route: 030
     Dates: start: 201206, end: 201206
  5. MEDICATIONS NOS [Concomitant]
     Indication: PRODUCT USED FOR UNKNOWN INDICATION

REACTIONS (22)
  - Off label use [Unknown]
  - Burning sensation [Not Recovered/Not Resolved]
  - Tremor [Unknown]
  - Burning sensation [Not Recovered/Not Resolved]
  - Urinary retention [Recovering/Resolving]
  - Prostatitis [Recovering/Resolving]
  - Pain [Unknown]
  - Pain [Unknown]
  - Fatigue [Unknown]
  - Asthenia [Unknown]
  - Asthenia [Unknown]
  - Asthenia [Unknown]
  - Asthenia [Unknown]
  - Sensory disturbance [Unknown]
  - Sensory disturbance [Unknown]
  - Chills [Unknown]
  - Anxiety [Unknown]
  - Influenza like illness [Unknown]
  - Eye irritation [Unknown]
  - Nervous system disorder [Unknown]
  - Musculoskeletal pain [Unknown]
  - Neck pain [Unknown]
